FAERS Safety Report 4455757-0 (Version None)
Quarter: 2004Q3

REPORT INFORMATION
  Report Type: 
  Country: None (occurrence: None)
  Receive Date: 20040920
  Receipt Date: 20040910
  Transmission Date: 20050211
  Serious: Yes (Death, Hospitalization)
  Sender: FDA-Public Use
  Company Number: KII-2003-0003532

PATIENT
  Age: 42 Year
  Sex: Male

DRUGS (1)
  1. MS CONTIN [Suspect]

REACTIONS (2)
  - MEDICATION ERROR [None]
  - RESPIRATORY DEPRESSION [None]
